FAERS Safety Report 9379075 (Version 1)
Quarter: 2013Q3

REPORT INFORMATION
  Report Type: Spontaneous
  Country: BR (occurrence: BR)
  Receive Date: 20130702
  Receipt Date: 20130702
  Transmission Date: 20140515
  Serious: Yes (Other)
  Sender: FDA-Public Use
  Company Number: PHHY2013BR067940

PATIENT
  Age: 12 Year
  Sex: Male

DRUGS (3)
  1. TEGRETOL [Suspect]
     Indication: CONVULSION
     Dosage: UNK UKN, BID
     Route: 048
  2. TEGRETOL [Suspect]
     Indication: CONVULSION
     Dosage: 1.5 DF, BID
     Route: 048
  3. GARDENAL//PHENOBARBITAL [Suspect]
     Indication: CONVULSION
     Dosage: 1 DF, QD
     Route: 048

REACTIONS (4)
  - Eye movement disorder [Recovered/Resolved]
  - Nervous system disorder [Recovered/Resolved]
  - Tuberous sclerosis [Recovering/Resolving]
  - Psychomotor hyperactivity [Recovered/Resolved]
